FAERS Safety Report 5988673-3 (Version None)
Quarter: 2008Q4

REPORT INFORMATION
  Report Type: 
  Country: None (occurrence: None)
  Receive Date: 20081210
  Receipt Date: 20081120
  Transmission Date: 20090506
  Serious: Yes (Hospitalization, Other)
  Sender: FDA-Public Use
  Company Number: PHEH2008US07038

PATIENT
  Sex: Female
  Weight: 70.3 kg

DRUGS (18)
  1. AREDIA [Suspect]
     Dosage: 90 MG, QMO
     Dates: start: 19980101, end: 19990625
  2. ZOMETA [Suspect]
     Dosage: 4 MG, UNK
  3. RADIATION THERAPY [Suspect]
     Dosage: 3250CGYS/TOTAL
     Dates: start: 19980505, end: 20060419
  4. RADIATION THERAPY [Suspect]
     Dosage: 3000CGYS / TOTAL
     Dates: start: 20060424, end: 20060512
  5. RADIATION THERAPY [Suspect]
     Dosage: 3000CGYS / TOTAL
     Dates: start: 20060620, end: 20060704
  6. VANCOMYCIN [Concomitant]
  7. ERTAPENEM [Concomitant]
  8. NEUPOGEN [Concomitant]
  9. ARIMIDEX [Concomitant]
     Indication: NEOPLASM MALIGNANT
  10. LESCOL [Concomitant]
  11. METOPROLOL TARTRATE TABLETS USP (NGX) [Concomitant]
     Indication: HYPERTENSION
  12. PROZAC [Concomitant]
  13. CHEMOTHERAPEUTICS NOS [Concomitant]
  14. TAMOXIFEN [Concomitant]
     Dosage: UNK
     Dates: start: 19980224
  15. PROTONIX [Concomitant]
  16. MEVACOR [Concomitant]
  17. QUINIDINE HCL [Concomitant]
     Indication: HYPERTENSION
  18. PREVACID [Concomitant]

REACTIONS (25)
  - ACUTE SINUSITIS [None]
  - BARTHOLIN'S CYST REMOVAL [None]
  - BONE MARROW FAILURE [None]
  - BONE NEOPLASM MALIGNANT [None]
  - BONE PAIN [None]
  - BREAST CANCER RECURRENT [None]
  - CHRONIC SINUSITIS [None]
  - FISTULA [None]
  - HYPERCALCAEMIA [None]
  - IMPAIRED HEALING [None]
  - INFLAMMATION [None]
  - ORAL DISORDER [None]
  - OSTEONECROSIS [None]
  - OSTEOSARCOMA METASTATIC [None]
  - PAIN IN JAW [None]
  - PANCYTOPENIA [None]
  - PARANASAL SINUS MUCOSAL HYPERTROPHY [None]
  - RENAL FAILURE [None]
  - RIB FRACTURE [None]
  - SEPSIS [None]
  - SEQUESTRECTOMY [None]
  - SINUS DISORDER [None]
  - TOOTH EXTRACTION [None]
  - VERTEBROPLASTY [None]
  - WOUND DRAINAGE [None]
